FAERS Safety Report 19891561 (Version 1)
Quarter: 2021Q3

REPORT INFORMATION
  Report Type: Spontaneous
  Country: US (occurrence: US)
  Receive Date: 20210928
  Receipt Date: 20210928
  Transmission Date: 20211014
  Serious: Yes (Other)
  Sender: FDA-Public Use
  Company Number: US-ORGANON-O2109USA002176

PATIENT
  Sex: Female

DRUGS (3)
  1. COZAAR [Suspect]
     Active Substance: LOSARTAN POTASSIUM
     Dosage: 100 MILLIGRAM
     Route: 048
  2. COZAAR [Interacting]
     Active Substance: LOSARTAN POTASSIUM
     Dosage: 75 MILLIGRAM
     Route: 048
  3. HYGROTON [Interacting]
     Active Substance: CHLORTHALIDONE
     Dosage: UNK

REACTIONS (2)
  - Drug interaction [Unknown]
  - Nephrolithiasis [Unknown]
